FAERS Safety Report 8392896-6 (Version None)
Quarter: 2012Q2

REPORT INFORMATION
  Report Type: 
  Country: None (occurrence: None)
  Receive Date: 20120529
  Receipt Date: 20120521
  Transmission Date: 20120825
  Serious: Yes (Life-Threatening)
  Sender: FDA-Public Use
  Company Number: EG-BAXTER-2012BAX006360

PATIENT
  Sex: Male

DRUGS (1)
  1. HUMAN ALBUMIN 200G/L BAXTER [Suspect]
     Dosage: 200G/L

REACTIONS (2)
  - PRODUCT COUNTERFEIT [None]
  - ANAPHYLACTIC SHOCK [None]
